FAERS Safety Report 7647577-0 (Version None)
Quarter: 2011Q3

REPORT INFORMATION
  Report Type: 
  Country: None (occurrence: None)
  Receive Date: 20110801
  Receipt Date: 20110728
  Transmission Date: 20111222
  Serious: Yes (Death)
  Sender: FDA-Public Use
  Company Number: TN-SANOFI-AVENTIS-2011SA048714

PATIENT
  Age: 69 Year
  Sex: Male

DRUGS (8)
  1. PLAVIX [Suspect]
     Route: 048
     Dates: start: 20100402, end: 20110128
  2. INSULIN [Concomitant]
     Route: 058
     Dates: end: 20110128
  3. GLUCOPHAGE [Concomitant]
     Route: 048
     Dates: end: 20110128
  4. FAMOTIDINE [Concomitant]
     Route: 048
     Dates: end: 20110128
  5. ASPIRIN [Concomitant]
     Route: 048
     Dates: end: 20110128
  6. TRIB [Concomitant]
     Route: 048
     Dates: end: 20110128
  7. PLAVIX [Suspect]
     Indication: STENT PLACEMENT
     Route: 048
     Dates: start: 20100402, end: 20110128
  8. TRIAZIDE [Concomitant]
     Route: 048
     Dates: end: 20110128

REACTIONS (1)
  - ARTERIAL REPAIR [None]
